FAERS Safety Report 8110429-6 (Version None)
Quarter: 2012Q1

REPORT INFORMATION
  Report Type: 
  Country: None (occurrence: None)
  Receive Date: 20120202
  Receipt Date: 20120124
  Transmission Date: 20120608
  Serious: Yes (Hospitalization, Other)
  Sender: FDA-Public Use
  Company Number: US-ASTRAZENECA-2011SE78901

PATIENT
  Age: 59 Year
  Sex: Female
  Weight: 99.8 kg

DRUGS (12)
  1. SEROQUEL [Suspect]
     Indication: INSOMNIA
     Route: 048
  2. ASPIRIN [Concomitant]
     Dosage: UNKNOWN DOSE DAILY
  3. HYDROCHLOROTHIAZIDE [Concomitant]
  4. LISINOPRIL [Concomitant]
  5. HIGH BLOOD PRESSURE MEDICATION [Concomitant]
     Indication: HYPERTENSION
  6. SEROQUEL [Suspect]
     Route: 048
  7. SEROQUEL [Suspect]
     Route: 048
  8. ALLERGY MEDICATION [Concomitant]
     Indication: MULTIPLE ALLERGIES
  9. PAIN MEDICATION [Concomitant]
     Indication: PAIN
  10. VITAMIN D [Concomitant]
  11. SEROQUEL [Suspect]
     Indication: BIPOLAR DISORDER
     Route: 048
  12. LEXAPRO [Concomitant]
     Indication: ANXIETY
     Dates: start: 20060101

REACTIONS (10)
  - ACCIDENT [None]
  - INSOMNIA [None]
  - THROMBOSIS [None]
  - CRYING [None]
  - NERVOUSNESS [None]
  - OFF LABEL USE [None]
  - DRUG DOSE OMISSION [None]
  - ABASIA [None]
  - DEPRESSED MOOD [None]
  - INJURY [None]
